FAERS Safety Report 6617778-9 (Version None)
Quarter: 2010Q1

REPORT INFORMATION
  Report Type: 
  Country: None (occurrence: None)
  Receive Date: 20100308
  Receipt Date: 20100302
  Transmission Date: 20100710
  Serious: Yes (Death, Hospitalization, Disabling)
  Sender: FDA-Public Use
  Company Number: PHHY2009JP14961

PATIENT
  Sex: Female
  Weight: 42 kg

DRUGS (7)
  1. ICL670A ICL+DISTAB [Suspect]
     Indication: IRON OVERLOAD
     Dosage: 500 MG, DAILY
     Route: 048
     Dates: start: 20080730, end: 20080831
  2. ICL670A ICL+DISTAB [Suspect]
     Dosage: 750 MG, DAILY
     Route: 048
     Dates: start: 20080901, end: 20080922
  3. ICL670A ICL+DISTAB [Suspect]
     Dosage: 500 MG, DAILY
     Route: 048
     Dates: start: 20080923, end: 20080925
  4. TOWAMIN [Concomitant]
     Dosage: 50 MG, UNK
     Route: 048
     Dates: start: 20060101, end: 20090102
  5. NORVASC [Concomitant]
     Dosage: 5 MG, UNK
     Route: 048
     Dates: start: 20060101, end: 20081230
  6. DESFERAL [Concomitant]
     Dosage: 500 MG, UNK
     Route: 030
  7. RED BLOOD CELLS [Concomitant]
     Dosage: 2 UNITS EVERY 2-4 WEEKS
     Dates: start: 20080901, end: 20090216

REACTIONS (3)
  - AORTIC ANEURYSM RUPTURE [None]
  - RENAL FAILURE [None]
  - VISUAL IMPAIRMENT [None]
